FAERS Safety Report 8818263 (Version 1)
Quarter: 2012Q4

REPORT INFORMATION
  Report Type: 
  Country: ES (occurrence: ES)
  Receive Date: 20121001
  Receipt Date: 20121001
  Transmission Date: 20130627
  Serious: Yes (Hospitalization)
  Sender: FDA-Public Use
  Company Number: ES-GLAXOSMITHKLINE-B0834275A

PATIENT
  Age: 6 Year
  Sex: Male

DRUGS (1)
  1. ZINNAT [Suspect]
     Indication: OROPHARYNGEAL PAIN
     Dosage: 1200MG per day
     Route: 048
     Dates: start: 20120925, end: 20120925

REACTIONS (2)
  - Accidental overdose [Recovered/Resolved]
  - No adverse event [Unknown]
